FAERS Safety Report 9454491 (Version 1)
Quarter: 2013Q3

REPORT INFORMATION
  Report Type: Spontaneous
  Country: FR (occurrence: FR)
  Receive Date: 20130812
  Receipt Date: 20130812
  Transmission Date: 20140515
  Serious: Yes (Hospitalization, Other)
  Sender: FDA-Public Use
  Company Number: FR-MALLINCKRODT-T201304099

PATIENT
  Age: 72 Year
  Sex: Female

DRUGS (3)
  1. OPTIJECT 350 [Suspect]
     Indication: COMPUTERISED TOMOGRAM
     Dosage: 90 ML, 1 IN 1 D
     Route: 042
     Dates: start: 20130705, end: 20130705
  2. LEVOTHYROX [Concomitant]
     Indication: PRODUCT USED FOR UNKNOWN INDICATION
     Dosage: UNK
  3. LASILIX                            /00032601/ [Concomitant]
     Indication: PRODUCT USED FOR UNKNOWN INDICATION
     Dosage: UNK

REACTIONS (2)
  - Bronchospasm [Recovered/Resolved]
  - Hypersensitivity [Recovered/Resolved]
